FAERS Safety Report 11775021 (Version 1)
Quarter: 2015Q4

REPORT INFORMATION
  Report Type: Spontaneous
  Country: GB (occurrence: GB)
  Receive Date: 20151124
  Receipt Date: 20151124
  Transmission Date: 20160304
  Serious: Yes (Disabling, Other)
  Sender: FDA-Public Use
  Company Number: GB-TEVA-609794ACC

PATIENT
  Age: 75 Year
  Sex: Male

DRUGS (1)
  1. PERGOLIDE [Suspect]
     Active Substance: PERGOLIDE
     Indication: PARKINSON^S DISEASE

REACTIONS (2)
  - Respiratory disorder [Unknown]
  - Pulmonary fibrosis [Unknown]
